FAERS Safety Report 17999859 (Version 10)
Quarter: 2020Q4

REPORT INFORMATION
  Report Type: Spontaneous
  Country: US (occurrence: US)
  Receive Date: 20200709
  Receipt Date: 20201113
  Transmission Date: 20210113
  Serious: Yes (Other)
  Sender: FDA-Public Use
  Company Number: US-PFIZER INC-2020262889

PATIENT
  Age: 73 Year
  Sex: Female
  Weight: 76 kg

DRUGS (3)
  1. FASLODEX [Concomitant]
     Active Substance: FULVESTRANT
     Dosage: UNK
     Dates: start: 20200622
  2. IBRANCE [Suspect]
     Active Substance: PALBOCICLIB
     Dosage: 100 MG, CYCLIC (DAILY ON DAYS 1-21 ON A 28 DAY CYCLE)
     Dates: start: 2020, end: 20201005
  3. IBRANCE [Suspect]
     Active Substance: PALBOCICLIB
     Indication: BREAST CANCER METASTATIC
     Dosage: 125 MG (ONCE DAILY FOR 3 WEEKS)
     Dates: start: 20200622, end: 20200712

REACTIONS (29)
  - Leukopenia [Not Recovered/Not Resolved]
  - COVID-19 [Unknown]
  - Fatigue [Recovered/Resolved]
  - Mean platelet volume decreased [Unknown]
  - Lymphocyte count decreased [Unknown]
  - Alanine aminotransferase increased [Unknown]
  - Paraesthesia [Not Recovered/Not Resolved]
  - Mood altered [Recovered/Resolved]
  - Dizziness [Recovered/Resolved]
  - Red blood cell count decreased [Unknown]
  - Neutrophil count decreased [Unknown]
  - Neuropathy peripheral [Not Recovered/Not Resolved]
  - Neutropenia [Unknown]
  - Nausea [Recovered/Resolved]
  - Mood swings [Recovered/Resolved]
  - Ear infection [Recovered/Resolved]
  - Haematocrit decreased [Unknown]
  - Blood alkaline phosphatase decreased [Unknown]
  - Malaise [Unknown]
  - Agitation [Recovered/Resolved]
  - Impatience [Not Recovered/Not Resolved]
  - White blood cell count decreased [Recovering/Resolving]
  - Somnolence [Unknown]
  - Weight decreased [Unknown]
  - Pain [Not Recovered/Not Resolved]
  - Decreased appetite [Not Recovered/Not Resolved]
  - Aspartate aminotransferase increased [Unknown]
  - Hot flush [Unknown]
  - Hyperhidrosis [Unknown]

NARRATIVE: CASE EVENT DATE: 2020
